FAERS Safety Report 6016993-5 (Version None)
Quarter: 2008Q4

REPORT INFORMATION
  Report Type: 
  Country: None (occurrence: None)
  Receive Date: 20081223
  Receipt Date: 20081209
  Transmission Date: 20090506
  Serious: No
  Sender: FDA-Public Use
  Company Number: US-ROCHE-595811

PATIENT
  Sex: Female
  Weight: 83 kg

DRUGS (7)
  1. BONIVA [Suspect]
     Indication: OSTEOPENIA
     Route: 048
     Dates: start: 20080822
  2. GEMFIBROZIL [Concomitant]
     Route: 048
     Dates: end: 20080901
  3. ISOSORBIDE [Concomitant]
     Route: 048
     Dates: end: 20080901
  4. METOPROLOL [Concomitant]
     Route: 048
     Dates: end: 20080901
  5. KLOR-CON [Concomitant]
     Dosage: KLOR-CON 10
     Route: 048
     Dates: end: 20080901
  6. PLAVIX [Concomitant]
     Route: 048
     Dates: end: 20080901
  7. DYRENIUM [Concomitant]
     Route: 048
     Dates: end: 20080901

REACTIONS (3)
  - MUSCULOSKELETAL PAIN [None]
  - PRURITUS [None]
  - RASH [None]
